FAERS Safety Report 22648075 (Version 1)
Quarter: 2023Q2

REPORT INFORMATION
  Report Type: Spontaneous
  Country: US (occurrence: US)
  Receive Date: 20230628
  Receipt Date: 20230628
  Transmission Date: 20230722
  Serious: Yes (Hospitalization)
  Sender: FDA-Public Use
  Company Number: US-drreddys-LIT/USA/23/0168641

PATIENT
  Age: 33 Year
  Sex: Male

DRUGS (10)
  1. DOXORUBICIN HYDROCHLORIDE [Suspect]
     Active Substance: DOXORUBICIN HYDROCHLORIDE
     Indication: Burkitt^s lymphoma
     Dosage: CYCLICAL
  2. DOXORUBICIN HYDROCHLORIDE [Suspect]
     Active Substance: DOXORUBICIN HYDROCHLORIDE
     Dosage: 5 CYCLES OF DOSE-ADJUSTED
  3. RITUXIMAB [Suspect]
     Active Substance: RITUXIMAB
     Indication: Burkitt^s lymphoma
     Dosage: CYCLICAL
  4. RITUXIMAB [Suspect]
     Active Substance: RITUXIMAB
     Dosage: 5 CYCLES OF DOSE-ADJUSTED
  5. CYCLOPHOSPHAMIDE [Suspect]
     Active Substance: CYCLOPHOSPHAMIDE
     Indication: Burkitt^s lymphoma
     Dosage: CYCLICAL
  6. CYCLOPHOSPHAMIDE [Suspect]
     Active Substance: CYCLOPHOSPHAMIDE
     Dosage: 5 CYCLES OF DOSE-ADJUSTED
  7. VINCRISTINE [Suspect]
     Active Substance: VINCRISTINE
     Indication: Burkitt^s lymphoma
     Dosage: CYCLICAL
  8. VINCRISTINE [Suspect]
     Active Substance: VINCRISTINE
     Dosage: 5 CYCLES OF DOSE-ADJUSTED
  9. METHOTREXATE [Suspect]
     Active Substance: METHOTREXATE
     Indication: Burkitt^s lymphoma
     Dosage: CYCLICAL
  10. METHOTREXATE [Suspect]
     Active Substance: METHOTREXATE
     Dosage: 5 CYCLES OF DOSE-ADJUSTED

REACTIONS (6)
  - Neurotoxicity [Recovered/Resolved]
  - Cytokine release syndrome [Recovered/Resolved]
  - Pulmonary mass [Unknown]
  - Hilar lymphadenopathy [Unknown]
  - Multisystem inflammatory syndrome [Unknown]
  - Drug ineffective for unapproved indication [Unknown]
